FAERS Safety Report 5901059-2 (Version None)
Quarter: 2008Q3

REPORT INFORMATION
  Report Type: 
  Country: None (occurrence: None)
  Receive Date: 20080929
  Receipt Date: 20020919
  Transmission Date: 20090109
  Serious: No
  Sender: FDA-Public Use
  Company Number: US-BAYER-200222477BWH

PATIENT
  Age: 42 Year
  Sex: Female
  Weight: 81 kg

DRUGS (1)
  1. AVELOX [Suspect]
     Indication: LOCALISED INFECTION
     Dosage: TOTAL DAILY DOSE: 400 MG  UNIT DOSE: 400 MG
     Route: 042
     Dates: start: 20020831, end: 20020911

REACTIONS (4)
  - INJECTION SITE ERYTHEMA [None]
  - INJECTION SITE IRRITATION [None]
  - INJECTION SITE REACTION [None]
  - RASH [None]
